FAERS Safety Report 8024701-1 (Version None)
Quarter: 2012Q1

REPORT INFORMATION
  Report Type: 
  Country: None (occurrence: None)
  Receive Date: 20120105
  Receipt Date: 20111229
  Transmission Date: 20120608
  Serious: No
  Sender: FDA-Public Use
  Company Number: US-B.I. PHARMACEUTICALS,INC./RIDGEFIELD-2011-BP-23944BP

PATIENT
  Sex: Male

DRUGS (1)
  1. ZANTAC 75 [Suspect]

REACTIONS (1)
  - DRUG INEFFECTIVE [None]
